FAERS Safety Report 23907100 (Version 6)
Quarter: 2025Q2

REPORT INFORMATION
  Report Type: Report from Study
  Country: CN (occurrence: CN)
  Receive Date: 20240528
  Receipt Date: 20250423
  Transmission Date: 20250716
  Serious: Yes (Other)
  Sender: ROCHE
  Company Number: CN-ROCHE-3569361

PATIENT
  Age: 73 Year
  Sex: Female
  Weight: 52.2 kg

DRUGS (48)
  1. POLATUZUMAB VEDOTIN [Suspect]
     Active Substance: POLATUZUMAB VEDOTIN
     Indication: Diffuse large B-cell lymphoma
     Route: 042
     Dates: start: 20231103, end: 20231103
  2. POLATUZUMAB VEDOTIN [Suspect]
     Active Substance: POLATUZUMAB VEDOTIN
     Route: 042
     Dates: start: 20230902, end: 20230902
  3. POLATUZUMAB VEDOTIN [Suspect]
     Active Substance: POLATUZUMAB VEDOTIN
     Route: 042
     Dates: start: 20230529, end: 20230529
  4. MABTHERA [Suspect]
     Active Substance: RITUXIMAB
     Indication: Diffuse large B-cell lymphoma
     Route: 042
     Dates: start: 20230625, end: 20230625
  5. MABTHERA [Suspect]
     Active Substance: RITUXIMAB
     Route: 042
     Dates: start: 20230725, end: 20230725
  6. MABTHERA [Suspect]
     Active Substance: RITUXIMAB
     Route: 042
     Dates: start: 20230901, end: 20230901
  7. MABTHERA [Suspect]
     Active Substance: RITUXIMAB
     Route: 042
     Dates: start: 20230926, end: 20230926
  8. MABTHERA [Suspect]
     Active Substance: RITUXIMAB
     Route: 042
     Dates: start: 20231102, end: 20231102
  9. MABTHERA [Suspect]
     Active Substance: RITUXIMAB
     Dosage: ON 31-MAY-2023, SHE RECEIVED MOST RECENT DOSE OF RITUXIMAB PRIOR TO AE.
     Route: 042
     Dates: start: 20230531, end: 20230531
  10. METHYLPREDNISOLONE SODIUM SUCCINATE [Suspect]
     Active Substance: METHYLPREDNISOLONE SODIUM SUCCINATE
     Indication: Diffuse large B-cell lymphoma
     Route: 042
     Dates: start: 20230626, end: 20230630
  11. METHYLPREDNISOLONE SODIUM SUCCINATE [Suspect]
     Active Substance: METHYLPREDNISOLONE SODIUM SUCCINATE
     Route: 042
     Dates: start: 20230529, end: 20230602
  12. METHYLPREDNISOLONE SODIUM SUCCINATE [Suspect]
     Active Substance: METHYLPREDNISOLONE SODIUM SUCCINATE
     Route: 048
     Dates: start: 20230902, end: 20230906
  13. PREDNISONE [Suspect]
     Active Substance: PREDNISONE
     Indication: Diffuse large B-cell lymphoma
     Route: 048
     Dates: start: 20231102, end: 20231106
  14. CYCLOPHOSPHAMIDE [Suspect]
     Active Substance: CYCLOPHOSPHAMIDE
     Indication: Diffuse large B-cell lymphoma
     Dosage: ON 29-MAY-2023, SHE RECEIVED MOST RECENT DOSE OF CYCLOPHOSPHAMIDE PRIOR TO AE.
     Route: 042
     Dates: start: 20230529, end: 20230530
  15. CYCLOPHOSPHAMIDE [Suspect]
     Active Substance: CYCLOPHOSPHAMIDE
     Route: 042
     Dates: start: 20230902, end: 20230902
  16. EPIRUBICIN [Suspect]
     Active Substance: EPIRUBICIN
     Indication: Diffuse large B-cell lymphoma
     Dosage: ON 29-MAY-2023, SHE RECEIVED MOST RECENT DOSE  OF EPIRUBICIN PRIOR TO AE.
     Route: 042
     Dates: start: 20230529, end: 20230529
  17. EPIRUBICIN [Suspect]
     Active Substance: EPIRUBICIN
     Route: 042
     Dates: start: 20230530, end: 20230530
  18. EPIRUBICIN [Suspect]
     Active Substance: EPIRUBICIN
     Route: 042
     Dates: start: 20230902, end: 20230902
  19. EPIRUBICIN [Suspect]
     Active Substance: EPIRUBICIN
     Route: 042
     Dates: start: 20231102, end: 20231102
  20. ENTECAVIR [Concomitant]
     Active Substance: ENTECAVIR
     Dosage: MEDICATION DOSE: 1 TABLET
     Route: 048
     Dates: start: 20230527
  21. leucogen tablet [Concomitant]
     Route: 048
     Dates: start: 20230603
  22. leucogen tablet [Concomitant]
     Route: 048
     Dates: start: 20230603
  23. compound paracetamol tablet [Concomitant]
     Route: 048
     Dates: start: 20230903, end: 20230903
  24. compound paracetamol tablet [Concomitant]
     Route: 048
     Dates: start: 20230903, end: 20230904
  25. PROMETHAZINE [Concomitant]
     Active Substance: PROMETHAZINE HYDROCHLORIDE
     Route: 030
     Dates: start: 20230531, end: 20230531
  26. PROMETHAZINE [Concomitant]
     Active Substance: PROMETHAZINE HYDROCHLORIDE
     Route: 030
     Dates: start: 20230903, end: 20230903
  27. PROMETHAZINE [Concomitant]
     Active Substance: PROMETHAZINE HYDROCHLORIDE
     Route: 030
     Dates: start: 20230625, end: 20230821
  28. omeprazole enteric-coated capsules [Concomitant]
     Route: 048
     Dates: start: 20230902, end: 20230906
  29. omeprazole enteric-coated capsules [Concomitant]
     Route: 048
     Dates: start: 20230927, end: 20230927
  30. omeprazole enteric-coated capsules [Concomitant]
     Route: 042
     Dates: start: 20230625, end: 20230625
  31. omeprazole enteric-coated capsules [Concomitant]
     Route: 048
     Dates: start: 20230526
  32. omeprazole enteric-coated capsules [Concomitant]
     Route: 042
     Dates: start: 20230530, end: 20230603
  33. omeprazole enteric-coated capsules [Concomitant]
     Route: 042
     Dates: start: 20231221
  34. GLYCOSAMINOGLYCANS [Concomitant]
     Active Substance: GLYCOSAMINOGLYCANS
     Dates: start: 20230529, end: 20230602
  35. Latamoxef Sodium For Injection [Concomitant]
     Route: 042
     Dates: start: 20230926, end: 20230926
  36. Latamoxef Sodium For Injection [Concomitant]
     Route: 042
     Dates: start: 20230901, end: 20230901
  37. Latamoxef Sodium For Injection [Concomitant]
     Route: 042
     Dates: start: 20230725, end: 20230725
  38. Latamoxef Sodium For Injection [Concomitant]
     Route: 042
     Dates: start: 20230901, end: 20230901
  39. Latamoxef Sodium For Injection [Concomitant]
     Route: 042
     Dates: start: 20230725, end: 20230725
  40. LIDOCAINE HYDROCHLORIDE [Concomitant]
     Active Substance: LIDOCAINE HYDROCHLORIDE
     Route: 058
     Dates: start: 20230601, end: 20230601
  41. LIDOCAINE HYDROCHLORIDE [Concomitant]
     Active Substance: LIDOCAINE HYDROCHLORIDE
     Route: 058
     Dates: start: 20230724, end: 20230726
  42. mometasone furoate cream [Concomitant]
     Dates: start: 20230726, end: 20230726
  43. omeprazole sodium for injection [Concomitant]
     Route: 042
     Dates: start: 20230625, end: 20230625
  44. omeprazole sodium for injection [Concomitant]
     Route: 042
     Dates: start: 20230530, end: 20230603
  45. METHYLPREDNISOLONE SODIUM SUCCINATE [Concomitant]
     Active Substance: METHYLPREDNISOLONE SODIUM SUCCINATE
     Route: 042
     Dates: start: 20230530, end: 20230603
  46. Palonosetron hydrochloride capsules [Concomitant]
     Route: 048
     Dates: start: 20230529, end: 20230529
  47. DEXAMETHASONE SODIUM PHOSPHATE [Concomitant]
     Active Substance: DEXAMETHASONE SODIUM PHOSPHATE
     Route: 042
     Dates: start: 20230625, end: 20230625
  48. DEXAMETHASONE SODIUM PHOSPHATE [Concomitant]
     Active Substance: DEXAMETHASONE SODIUM PHOSPHATE
     Route: 042
     Dates: start: 20230601, end: 20230601

REACTIONS (5)
  - Lymphocyte count decreased [Not Recovered/Not Resolved]
  - White blood cell count decreased [Not Recovered/Not Resolved]
  - Hypoalbuminaemia [Not Recovered/Not Resolved]
  - Hypokalaemia [Recovered/Resolved]
  - Lipoma [Not Recovered/Not Resolved]
